FAERS Safety Report 13728919 (Version 8)
Quarter: 2018Q1

REPORT INFORMATION
  Report Type: Spontaneous
  Country: JP (occurrence: JP)
  Receive Date: 20170707
  Receipt Date: 20180205
  Transmission Date: 20180508
  Serious: Yes (Disabling, Other)
  Sender: FDA-Public Use
  Company Number: JP-009507513-1706JPN000856J

PATIENT
  Age: 54 Year
  Sex: Female
  Weight: 45 kg

DRUGS (1)
  1. KEYTRUDA [Suspect]
     Active Substance: PEMBROLIZUMAB
     Indication: LUNG ADENOCARCINOMA
     Dosage: 200 MG, Q3W
     Route: 041
     Dates: start: 20170519, end: 20171020

REACTIONS (4)
  - Renal disorder [Not Recovered/Not Resolved]
  - Autoimmune thyroiditis [Unknown]
  - Renal impairment [Not Recovered/Not Resolved]
  - Hepatic function abnormal [Recovered/Resolved]

NARRATIVE: CASE EVENT DATE: 20170609
